FAERS Safety Report 14151637 (Version 1)
Quarter: 2017Q4

REPORT INFORMATION
  Report Type: Spontaneous
  Country: CH (occurrence: CH)
  Receive Date: 20171102
  Receipt Date: 20171102
  Transmission Date: 20180321
  Serious: Yes (Other)
  Sender: FDA-Public Use
  Company Number: CH-BEH-2017084800

PATIENT

DRUGS (1)
  1. IDELVION [Suspect]
     Active Substance: COAGULATION FACTOR IX RECOMBINANT HUMAN
     Indication: PROPHYLAXIS
     Route: 065

REACTIONS (1)
  - Haemarthrosis [Recovered/Resolved]
